FAERS Safety Report 16880336 (Version 1)
Quarter: 2019Q4

REPORT INFORMATION
  Report Type: Report from Study
  Country: None (occurrence: DO)
  Receive Date: 20191003
  Receipt Date: 20191003
  Transmission Date: 20200122
  Serious: Yes (Disabling, Other)
  Sender: FDA-Public Use
  Company Number: DO-ABBVIE-19K-279-2948431-00

PATIENT
  Age: 38 Year
  Sex: Male
  Weight: 63.56 kg

DRUGS (4)
  1. ZEMPLAR [Suspect]
     Active Substance: PARICALCITOL
     Route: 048
     Dates: start: 2019, end: 2019
  2. ZEMPLAR [Suspect]
     Active Substance: PARICALCITOL
     Indication: HYPERPARATHYROIDISM SECONDARY
     Route: 048
     Dates: start: 20161109, end: 201904
  3. MISERCOR [Concomitant]
     Indication: HYPERTENSION
     Route: 048
     Dates: start: 2013
  4. CAPRESAN [Concomitant]
     Indication: HYPERTENSION
     Route: 048
     Dates: start: 2013

REACTIONS (2)
  - Hypersensitivity [Unknown]
  - Renal transplant [Recovering/Resolving]

NARRATIVE: CASE EVENT DATE: 201904
